FAERS Safety Report 9057496 (Version 2)
Quarter: 2013Q4

REPORT INFORMATION
  Report Type: Spontaneous
  Country: US (occurrence: US)
  Receive Date: 20130204
  Receipt Date: 20131022
  Transmission Date: 20140711
  Serious: No
  Sender: FDA-Public Use
  Company Number: US-PFIZER INC-2013044155

PATIENT
  Age: 46 Year
  Sex: Male
  Weight: 83.9 kg

DRUGS (7)
  1. LYRICA [Suspect]
     Indication: PAIN
     Dosage: UNK
     Dates: end: 201301
  2. LYRICA [Suspect]
     Indication: HERPES ZOSTER
     Dosage: UNK
     Dates: start: 201302, end: 2013
  3. LYRICA [Suspect]
     Indication: POST HERPETIC NEURALGIA
     Dosage: 50 MG, 2X/DAY
     Dates: start: 201310
  4. DULOXETINE [Suspect]
     Indication: DEPRESSION
     Dosage: 60 MG, 1X/DAY
  5. DULOXETINE [Suspect]
     Indication: AFFECTIVE DISORDER
  6. CYMBALTA [Concomitant]
     Dosage: UNK
  7. LIDODERM [Concomitant]
     Dosage: UNK

REACTIONS (7)
  - Panic attack [Recovered/Resolved]
  - Tremor [Recovered/Resolved]
  - Euphoric mood [Unknown]
  - Dizziness [Unknown]
  - Nausea [Unknown]
  - Headache [Unknown]
  - Drug ineffective [Unknown]
